FAERS Safety Report 7402505-8 (Version None)
Quarter: 2011Q2

REPORT INFORMATION
  Report Type: 
  Country: None (occurrence: None)
  Receive Date: 20110408
  Receipt Date: 20110404
  Transmission Date: 20111010
  Serious: Yes (Life-Threatening, Hospitalization, Other)
  Sender: FDA-Public Use
  Company Number: PHHY2011BR28589

PATIENT
  Age: 69 Year
  Sex: Female

DRUGS (4)
  1. LEPONEX [Suspect]
     Dosage: 400 MG, UNK
  2. CARBOLITIUM [Concomitant]
  3. LEPONEX [Suspect]
     Indication: BIPOLAR DISORDER
     Dosage: 300 MG
     Route: 048
     Dates: start: 20101222, end: 20110330
  4. DEPAKOTE [Concomitant]

REACTIONS (4)
  - INFECTION [None]
  - LEUKOPENIA [None]
  - DRUG INEFFECTIVE [None]
  - ABSCESS LIMB [None]
